FAERS Safety Report 7580483-9 (Version None)
Quarter: 2011Q2

REPORT INFORMATION
  Report Type: 
  Country: None (occurrence: None)
  Receive Date: 20110629
  Receipt Date: 20110504
  Transmission Date: 20111010
  Serious: Yes (Other)
  Sender: FDA-Public Use
  Company Number: A0926664A

PATIENT
  Age: 46 Year
  Sex: Female

DRUGS (1)
  1. TYKERB [Suspect]
     Dosage: 1250MG PER DAY
     Route: 048
     Dates: start: 20110406, end: 20110101

REACTIONS (5)
  - DERMATITIS ACNEIFORM [None]
  - ERYTHEMA [None]
  - NEOPLASM PROGRESSION [None]
  - LOCALISED INFECTION [None]
  - PAIN IN EXTREMITY [None]
